FAERS Safety Report 7631860-9 (Version None)
Quarter: 2011Q3

REPORT INFORMATION
  Report Type: 
  Country: None (occurrence: None)
  Receive Date: 20110725
  Receipt Date: 20110418
  Transmission Date: 20111222
  Serious: No
  Sender: FDA-Public Use
  Company Number: US-BRISTOL-MYERS SQUIBB COMPANY-15681117

PATIENT
  Age: 56 Year
  Sex: Female
  Weight: 59 kg

DRUGS (2)
  1. PREVACID [Suspect]
     Indication: GASTRIC DISORDER
     Dates: start: 20110101
  2. COUMADIN [Suspect]
     Dosage: 1 DF:ALTER 5 AND 7.5MG 5MG:9H49372A,EXP DATE DEC12,NDC:0056017270 7.5MG:8H34445B,NDC:0056017370

REACTIONS (2)
  - INTERNATIONAL NORMALISED RATIO DECREASED [None]
  - CONTUSION [None]
